FAERS Safety Report 8965701 (Version 2)
Quarter: 2013Q1

REPORT INFORMATION
  Report Type: Spontaneous
  Country: IT (occurrence: None)
  Receive Date: 20121206
  Receipt Date: 20121214
  Transmission Date: 20140127
  Serious: Yes (Hospitalization)
  Sender: FDA-Public Use
  Company Number: AUR-APL-2012-05093

PATIENT
  Age: 23 Year
  Sex: Female

DRUGS (2)
  1. PAROXETINE (PAROXETINE) [Suspect]
     Indication: PRODUCT USED FOR UNKNOWN INDICATION
     Dosage: 300 MG, SINGLE, ORAL
     Route: 048
     Dates: start: 20121105
  2. ALPRAZOLAM (ALPRAZOLAM) [Suspect]
     Indication: DEPRESSION
     Dosage: 10 MG, SINGLE, ORAL
     Route: 048
     Dates: start: 20121105, end: 20121105

REACTIONS (2)
  - Substance abuse [None]
  - Depression [None]
